FAERS Safety Report 9396621 (Version 1)
Quarter: 2013Q3

REPORT INFORMATION
  Report Type: Spontaneous
  Country: US (occurrence: US)
  Receive Date: 20130711
  Receipt Date: 20130711
  Transmission Date: 20140515
  Serious: Yes (Other)
  Sender: FDA-Public Use
  Company Number: US-RB-055885-13

PATIENT
  Age: 52 Year
  Sex: Female

DRUGS (5)
  1. SUBOXONE FILM [Suspect]
     Indication: DRUG DEPENDENCE
     Dosage: SUBOXONE FILM
     Route: 060
     Dates: start: 201110, end: 201207
  2. SUBOXONE FILM [Suspect]
     Dosage: SUBOXONE FILM; TAKING LESS THAN PRESCRIBED; DOSING UNKNOWN
     Route: 060
     Dates: start: 201207, end: 201207
  3. SUBOXONE FILM [Suspect]
     Dosage: SUBOXONE FILM
     Route: 060
     Dates: start: 20130130
  4. IBUPROFEN [Suspect]
     Indication: PAIN
     Dosage: DOSING DETAILS UNKNOWN
     Route: 048
     Dates: start: 2012
  5. TRAZODONE [Concomitant]
     Indication: PRODUCT USED FOR UNKNOWN INDICATION
     Dosage: DOSING DETAILS UNKNOWN
     Route: 048

REACTIONS (5)
  - Back pain [Not Recovered/Not Resolved]
  - Spinal fracture [Recovered/Resolved]
  - Abdominal pain upper [Not Recovered/Not Resolved]
  - Underdose [Recovered/Resolved]
  - Wrong technique in drug usage process [Recovered/Resolved]
